FAERS Safety Report 23783578 (Version 1)
Quarter: 2024Q2

REPORT INFORMATION
  Report Type: Report from Study
  Country: US (occurrence: US)
  Receive Date: 20240425
  Receipt Date: 20240425
  Transmission Date: 20240715
  Serious: Yes (Death)
  Sender: FDA-Public Use
  Company Number: US-BAYER-2024A061985

PATIENT
  Age: 90 Year
  Sex: Female
  Weight: 31.746 kg

DRUGS (23)
  1. ADEMPAS [Suspect]
     Active Substance: RIOCIGUAT
     Indication: Pulmonary arterial hypertension
     Dosage: UNK
     Dates: start: 20221109
  2. ADEMPAS [Suspect]
     Active Substance: RIOCIGUAT
     Indication: Pulmonary arterial hypertension
     Dosage: 2.5 MG, TID
     Route: 048
  3. PEPCID [Concomitant]
     Active Substance: FAMOTIDINE
  4. ELIQUIS [Concomitant]
     Active Substance: APIXABAN
  5. POTASSIUM CHLORIDE [Concomitant]
     Active Substance: POTASSIUM CHLORIDE
  6. MYRBETRIQ [Concomitant]
     Active Substance: MIRABEGRON
  7. MAGNESIUM [Concomitant]
     Active Substance: MAGNESIUM
  8. BREZTRI [Concomitant]
     Active Substance: BUDESONIDE\FORMOTEROL\GLYCOPYRROLATE
  9. BETAMETHASONE\CLOTRIMAZOLE [Concomitant]
     Active Substance: BETAMETHASONE\CLOTRIMAZOLE
  10. ALBUTEROL SULFATE [Concomitant]
     Active Substance: ALBUTEROL SULFATE
  11. HYDROXYCHLOROQUINE SULFATE [Concomitant]
     Active Substance: HYDROXYCHLOROQUINE SULFATE
  12. LACTOBACILLUS ACIDOPHILUS [Concomitant]
     Active Substance: LACTOBACILLUS ACIDOPHILUS
  13. B12 ACTIVE [Concomitant]
  14. FLONASE ALLERGY RELIEF [Concomitant]
     Active Substance: FLUTICASONE PROPIONATE
  15. CINNAMON PLUS CHROMIUM [Concomitant]
  16. MINOCYCLINE HYDROCHLORIDE [Concomitant]
     Active Substance: MINOCYCLINE HYDROCHLORIDE
  17. ZINC PICOLINATE [Concomitant]
     Active Substance: ZINC PICOLINATE
  18. AMITIZA [Concomitant]
     Active Substance: LUBIPROSTONE
  19. OXYGEN [Concomitant]
     Active Substance: OXYGEN
  20. LUBIPROSTONE [Concomitant]
     Active Substance: LUBIPROSTONE
  21. ATROVENT HFA [Concomitant]
     Active Substance: IPRATROPIUM BROMIDE
  22. TORSEMIDE [Concomitant]
     Active Substance: TORSEMIDE
  23. TRIAMCINOLONE ACETONIDE [Concomitant]
     Active Substance: TRIAMCINOLONE ACETONIDE

REACTIONS (1)
  - Death [Fatal]

NARRATIVE: CASE EVENT DATE: 20240421
